FAERS Safety Report 6156629-6 (Version None)
Quarter: 2009Q2

REPORT INFORMATION
  Report Type: 
  Country: None (occurrence: None)
  Receive Date: 20090416
  Receipt Date: 20090408
  Transmission Date: 20091009
  Serious: Yes (Hospitalization)
  Sender: FDA-Public Use
  Company Number: IT-ROCHE-620642

PATIENT
  Sex: Female
  Weight: 58 kg

DRUGS (10)
  1. CAPECITABINE [Suspect]
     Indication: DRUG USE FOR UNKNOWN INDICATION
     Route: 048
     Dates: start: 20090120, end: 20090204
  2. SUNITINIB MALATE [Suspect]
     Indication: BREAST CANCER
     Route: 048
     Dates: start: 20081203, end: 20090120
  3. VINORELBINE [Suspect]
     Indication: DRUG USE FOR UNKNOWN INDICATION
     Route: 042
     Dates: start: 20090120, end: 20090128
  4. LANSOPRAZOLE [Concomitant]
     Route: 048
     Dates: start: 20080101
  5. ZOLEDRONIC ACID [Concomitant]
     Route: 048
     Dates: start: 20081125
  6. BUPRENORFINA [Concomitant]
     Route: 048
     Dates: start: 20081127
  7. KETOROLAC [Concomitant]
     Route: 048
     Dates: start: 20080101
  8. BROMAZEPAM [Concomitant]
     Route: 048
     Dates: start: 20090128
  9. TRAMADOL [Concomitant]
     Route: 048
     Dates: start: 20090206
  10. CO-EFFERALGAN [Concomitant]

REACTIONS (3)
  - ABDOMINAL PAIN [None]
  - FEBRILE NEUTROPENIA [None]
  - VOMITING [None]
